FAERS Safety Report 24679150 (Version 2)
Quarter: 2024Q4

REPORT INFORMATION
  Report Type: Spontaneous
  Country: BE (occurrence: BE)
  Receive Date: 20241129
  Receipt Date: 20241204
  Transmission Date: 20250115
  Serious: Yes (Other)
  Sender: JOHNSON AND JOHNSON
  Company Number: None

PATIENT
  Age: 14 Year
  Sex: Male
  Weight: 55 kg

DRUGS (1)
  1. RISPERDAL [Suspect]
     Active Substance: RISPERIDONE
     Indication: Product used for unknown indication
     Dosage: 40.00 PILLS. CHRONIC THERAPY: 1 CO/DAY
     Route: 048
     Dates: start: 20190127

REACTIONS (3)
  - Somnolence [Unknown]
  - Intentional overdose [Unknown]
  - Intentional self-injury [Unknown]
